FAERS Safety Report 16741929 (Version 2)
Quarter: 2019Q4

REPORT INFORMATION
  Report Type: Spontaneous
  Country: CA (occurrence: CA)
  Receive Date: 20190826
  Receipt Date: 20191119
  Transmission Date: 20200122
  Serious: Yes (Other)
  Sender: FDA-Public Use
  Company Number: CA-TEVA-2019-CA-1098799

PATIENT
  Age: 75 Year
  Sex: Female

DRUGS (8)
  1. PREDNISONE. [Suspect]
     Active Substance: PREDNISONE
     Indication: PRODUCT USED FOR UNKNOWN INDICATION
     Route: 065
  2. HUMIRA [Suspect]
     Active Substance: ADALIMUMAB
     Indication: PRODUCT USED FOR UNKNOWN INDICATION
     Route: 058
  3. PLAQUENIL [Concomitant]
     Active Substance: HYDROXYCHLOROQUINE SULFATE
     Indication: PRODUCT USED FOR UNKNOWN INDICATION
  4. ORENCIA [Suspect]
     Active Substance: ABATACEPT
     Indication: RHEUMATOID ARTHRITIS
     Route: 042
  5. ARAVA [Concomitant]
     Active Substance: LEFLUNOMIDE
     Indication: PRODUCT USED FOR UNKNOWN INDICATION
  6. ASPIRIN. [Concomitant]
     Active Substance: ASPIRIN
     Indication: PRODUCT USED FOR UNKNOWN INDICATION
  7. METHOTREXATE. [Concomitant]
     Active Substance: METHOTREXATE
     Indication: PRODUCT USED FOR UNKNOWN INDICATION
  8. SULFASALAZINE. [Concomitant]
     Active Substance: SULFASALAZINE
     Indication: PRODUCT USED FOR UNKNOWN INDICATION

REACTIONS (23)
  - Fluid retention [Recovering/Resolving]
  - Nasopharyngitis [Recovering/Resolving]
  - Pain in extremity [Recovering/Resolving]
  - Asthenia [Recovering/Resolving]
  - Blood creatinine increased [Recovering/Resolving]
  - Malignant melanoma [Recovering/Resolving]
  - Productive cough [Recovering/Resolving]
  - Skin discolouration [Recovering/Resolving]
  - Skin laceration [Recovering/Resolving]
  - Wound [Recovering/Resolving]
  - Contusion [Recovering/Resolving]
  - Blood glucose decreased [Recovering/Resolving]
  - Inflammatory pain [Recovering/Resolving]
  - Renal impairment [Recovering/Resolving]
  - Visual impairment [Recovering/Resolving]
  - Weight decreased [Recovering/Resolving]
  - Wound infection [Recovering/Resolving]
  - Contraindicated product administered [Recovering/Resolving]
  - Hypotension [Recovering/Resolving]
  - Muscle spasms [Recovering/Resolving]
  - Scab [Recovering/Resolving]
  - Sputum discoloured [Recovering/Resolving]
  - Oedema [Recovering/Resolving]
